FAERS Safety Report 10982786 (Version 1)
Quarter: 2015Q1

REPORT INFORMATION
  Report Type: Spontaneous
  Country: US (occurrence: None)
  Receive Date: 20150302
  Receipt Date: 20150302
  Transmission Date: 20150721
  Serious: Yes (Other)
  Sender: FDA-Public Use
  Company Number: M2014-013A

PATIENT
  Age: 15 Year
  Sex: Female

DRUGS (1)
  1. ANIMAL ALLERGENS, AP DOG HAIR AND DANDER CANIS SPP [Suspect]
     Active Substance: CANIS LUPUS FAMILIARIS DANDER\CANIS LUPUS FAMILIARIS HAIR
     Indication: IMMUNE TOLERANCE INDUCTION
     Dosage: 0.15CC/INJECTION
     Dates: start: 20140709

REACTIONS (3)
  - Wheezing [None]
  - Urticaria [None]
  - Lip swelling [None]

NARRATIVE: CASE EVENT DATE: 20140709
